FAERS Safety Report 17760759 (Version 1)
Quarter: 2020Q2

REPORT INFORMATION
  Report Type: Spontaneous
  Country: US (occurrence: US)
  Receive Date: 20200508
  Receipt Date: 20200508
  Transmission Date: 20200714
  Serious: No
  Sender: FDA-Public Use
  Company Number: US-AMGEN-USASP2020073005

PATIENT
  Age: 9 Year
  Sex: Male

DRUGS (1)
  1. ROMIPLOSTIM [Suspect]
     Active Substance: ROMIPLOSTIM
     Indication: CONGENITAL APLASTIC ANAEMIA
     Dosage: 10 MICROGRAM/KILOGRAM, QWK
     Route: 065

REACTIONS (1)
  - Off label use [Unknown]
